FAERS Safety Report 14593348 (Version 2)
Quarter: 2018Q2

REPORT INFORMATION
  Report Type: Spontaneous
  Country: PL (occurrence: PL)
  Receive Date: 20180302
  Receipt Date: 20180424
  Transmission Date: 20180711
  Serious: Yes (Death, Other)
  Sender: FDA-Public Use
  Company Number: PL-PFIZER INC-2018082364

PATIENT
  Age: 54 Year
  Sex: Male

DRUGS (2)
  1. SUNITINIB MALATE. [Suspect]
     Active Substance: SUNITINIB MALATE
     Dosage: 37.5 MG, UNK
  2. SUNITINIB MALATE. [Suspect]
     Active Substance: SUNITINIB MALATE
     Dosage: 50 MG, CYCLIC, 4/2 SCHEDULE
     Dates: start: 20110201

REACTIONS (10)
  - Blood creatine increased [Unknown]
  - Diarrhoea [Unknown]
  - Neoplasm progression [Fatal]
  - Renal failure [Unknown]
  - Proteinuria [Unknown]
  - Asthenia [Unknown]
  - Neoplasm progression [Unknown]
  - Hypertension [Unknown]
  - Palmar-plantar erythrodysaesthesia syndrome [Unknown]
  - Anaemia [Unknown]

NARRATIVE: CASE EVENT DATE: 20170126
